FAERS Safety Report 9562371 (Version 1)
Quarter: 2013Q4

REPORT INFORMATION
  Report Type: Spontaneous
  Country: US (occurrence: None)
  Receive Date: 20130926
  Receipt Date: 20130926
  Transmission Date: 20140711
  Serious: Yes (Death)
  Sender: FDA-Public Use
  Company Number: None

PATIENT
  Age: 61 Year
  Sex: Female
  Weight: 76.5 kg

DRUGS (1)
  1. FOLFOX-ABRAXANE [Suspect]
     Indication: PANCREATIC CARCINOMA
     Dosage: IV Q2 WEEKS
     Route: 042
     Dates: start: 20130709, end: 20130806

REACTIONS (1)
  - Death [None]
